FAERS Safety Report 8717176 (Version 2)
Quarter: 2012Q4

REPORT INFORMATION
  Report Type: Report from Study
  Country: AU (occurrence: AU)
  Receive Date: 20120810
  Receipt Date: 20121026
  Transmission Date: 20130627
  Serious: Yes (Hospitalization, Disabling)
  Sender: FDA-Public Use
  Company Number: PHHO2012AU011471

PATIENT
  Age: 70 Year
  Sex: Female
  Weight: 57.8 kg

DRUGS (4)
  1. AMN107 [Suspect]
     Indication: CHRONIC MYELOID LEUKAEMIA
     Dosage: 300 mg, BID
     Route: 048
     Dates: start: 20120105, end: 20120921
  2. SERETIDE [Concomitant]
     Indication: ASTHMA
     Dosage: 2 DF, BID
     Dates: start: 20120117
  3. TIOTROPIUM [Concomitant]
     Indication: ASTHMA
     Dosage: Inhaler daily
     Dates: start: 20111223
  4. SALICYLIC ACID OINTMENT [Concomitant]
     Dosage: Apply to affected skin daily
     Dates: start: 20111223

REACTIONS (1)
  - Psoriasis [Recovering/Resolving]
